FAERS Safety Report 13936571 (Version 1)
Quarter: 2017Q3

REPORT INFORMATION
  Report Type: Report from Study
  Country: DE (occurrence: DE)
  Receive Date: 20170905
  Receipt Date: 20170905
  Transmission Date: 20171127
  Serious: Yes (Other)
  Sender: FDA-Public Use
  Company Number: DE-BRISTOL-MYERS SQUIBB COMPANY-BMS-2017-079381

PATIENT
  Age: 61 Year
  Sex: Female
  Weight: 92.5 kg

DRUGS (1)
  1. MITOTANE [Suspect]
     Active Substance: MITOTANE
     Indication: ADRENOCORTICAL CARCINOMA
     Dosage: UNK
     Route: 065

REACTIONS (10)
  - Cholestatic liver injury [Unknown]
  - Non-high-density lipoprotein cholesterol increased [Unknown]
  - Blood alkaline phosphatase increased [Unknown]
  - Glycosylated haemoglobin increased [Unknown]
  - Gamma-glutamyltransferase increased [Unknown]
  - High density lipoprotein decreased [Unknown]
  - Blood triglycerides increased [Unknown]
  - Blood cholesterol increased [Unknown]
  - Low density lipoprotein increased [Unknown]
  - Blood glucose increased [Unknown]

NARRATIVE: CASE EVENT DATE: 20170817
